FAERS Safety Report 8931284 (Version 3)
Quarter: 2012Q4

REPORT INFORMATION
  Report Type: 
  Country: JP (occurrence: JP)
  Receive Date: 20121128
  Receipt Date: 20121231
  Transmission Date: 20130627
  Serious: Yes (Hospitalization)
  Sender: FDA-Public Use
  Company Number: JP-VERTEX PHARMACEUTICAL INC.-2012-025082

PATIENT
  Age: 60 Year
  Sex: Female

DRUGS (8)
  1. TELAVIC [Suspect]
     Indication: CHRONIC HEPATITIS C
     Dosage: 1500 mg, qd
     Route: 048
     Dates: start: 20121016, end: 20121119
  2. RIBAVIRIN [Suspect]
     Indication: CHRONIC HEPATITIS C
     Dosage: 400 mg, qd
     Route: 048
     Dates: start: 20121016, end: 20121119
  3. PEGINTERFERON ALFA-2B [Suspect]
     Indication: CHRONIC HEPATITIS C
     Dosage: 1.5 ?g/kg, qw
     Route: 058
     Dates: start: 20121016, end: 20121112
  4. URSO [Concomitant]
     Dosage: 600 mg, qd
     Route: 048
  5. GLYCYRON [Concomitant]
     Dosage: 6 DF, qd
     Route: 048
  6. AMLODIN OD [Concomitant]
     Dosage: 2.5 mg, qd
     Route: 048
  7. MAINTATE [Concomitant]
     Dosage: 2.5 mg, qd
     Route: 048
  8. TALION [Concomitant]
     Dosage: 20 mg, qd
     Route: 048
     Dates: start: 20121015

REACTIONS (1)
  - Rash [Recovered/Resolved]
